FAERS Safety Report 21609366 (Version 11)
Quarter: 2024Q4

REPORT INFORMATION
  Report Type: Spontaneous
  Country: GB (occurrence: GB)
  Receive Date: 20221117
  Receipt Date: 20241101
  Transmission Date: 20250115
  Serious: Yes (Other)
  Sender: JOHNSON AND JOHNSON
  Company Number: GB-JNJFOC-20221134653

PATIENT
  Age: 53 Year
  Sex: Male

DRUGS (104)
  1. REMICADE [Suspect]
     Active Substance: INFLIXIMAB
     Indication: Colitis ulcerative
     Dosage: 120
     Route: 042
     Dates: start: 20170101, end: 20170901
  2. REMICADE [Suspect]
     Active Substance: INFLIXIMAB
     Indication: Colitis ulcerative
     Dosage: 120; ;
     Route: 042
     Dates: start: 201709
  3. REMICADE [Suspect]
     Active Substance: INFLIXIMAB
     Indication: Colitis ulcerative
     Dosage: 120?START DATE AND END DATE- 2017
     Route: 042
  4. REMICADE [Suspect]
     Active Substance: INFLIXIMAB
     Indication: Colitis ulcerative
     Dosage: 120
     Route: 042
     Dates: start: 20170101, end: 20170901
  5. REMICADE [Suspect]
     Active Substance: INFLIXIMAB
     Indication: Colitis ulcerative
     Route: 042
  6. REMICADE [Suspect]
     Active Substance: INFLIXIMAB
     Route: 042
  7. REMICADE [Suspect]
     Active Substance: INFLIXIMAB
     Route: 042
     Dates: start: 20170101, end: 20170901
  8. REMICADE [Suspect]
     Active Substance: INFLIXIMAB
     Dosage: UNK, Q6WK
     Route: 042
     Dates: start: 20171019
  9. REMICADE [Suspect]
     Active Substance: INFLIXIMAB
     Dosage: 5 MILLIGRAM/KILOGRAM, Q8WK
     Route: 042
     Dates: start: 20171019
  10. ASACOL [Suspect]
     Active Substance: MESALAMINE
     Indication: Colitis ulcerative
     Route: 065
     Dates: start: 20161001
  11. ASACOL [Suspect]
     Active Substance: MESALAMINE
     Indication: Product used for unknown indication
     Dosage: 6DOSAGE FORM
     Route: 065
     Dates: start: 20161001
  12. ASACOL [Suspect]
     Active Substance: MESALAMINE
     Dosage: 245
     Route: 065
     Dates: start: 20161001
  13. ASACOL [Suspect]
     Active Substance: MESALAMINE
     Dosage: 245
     Route: 065
     Dates: start: 20161001
  14. ASACOL [Suspect]
     Active Substance: MESALAMINE
     Dosage: 245
     Route: 065
     Dates: start: 20161001
  15. ASACOL [Suspect]
     Active Substance: MESALAMINE
     Dosage: 1 DOSAGE FORM
     Route: 065
     Dates: start: 201707
  16. ASACOL [Suspect]
     Active Substance: MESALAMINE
     Route: 065
  17. ASACOL [Suspect]
     Active Substance: MESALAMINE
     Dosage: 0.8 G, 3 TABLETS TWO TIMES A DAY (4.8 G DAILY)/3 DOSAGE FORM, Q12H
     Route: 065
     Dates: start: 20241001
  18. ASACOL [Suspect]
     Active Substance: MESALAMINE
     Route: 065
     Dates: start: 201610
  19. ASACOL [Suspect]
     Active Substance: MESALAMINE
     Dosage: 3 DOSAGE FORM, BID/6 DOSAGE FORM, QD
     Route: 065
     Dates: start: 20161001
  20. CORTIFOAM [Suspect]
     Active Substance: HYDROCORTISONE ACETATE
     Indication: Colitis ulcerative
     Dosage: 1 DOSAGE FORM
     Route: 048
     Dates: start: 201707
  21. CORTIFOAM [Suspect]
     Active Substance: HYDROCORTISONE ACETATE
     Route: 048
  22. ENTYVIO [Suspect]
     Active Substance: VEDOLIZUMAB
     Indication: Deep vein thrombosis
     Dosage: 200 UNK
     Route: 048
     Dates: start: 2017, end: 2017
  23. ENTYVIO [Suspect]
     Active Substance: VEDOLIZUMAB
     Indication: Colitis ulcerative
     Route: 048
  24. ENTYVIO [Suspect]
     Active Substance: VEDOLIZUMAB
     Dosage: 8 DOSAGE FORM
     Route: 042
     Dates: start: 201807
  25. SULFASALAZINE [Suspect]
     Active Substance: SULFASALAZINE
     Indication: Product used for unknown indication
     Route: 065
     Dates: start: 20160101, end: 20160101
  26. SULFASALAZINE [Suspect]
     Active Substance: SULFASALAZINE
     Indication: Colitis ulcerative
     Route: 065
     Dates: start: 201709, end: 201709
  27. SULFASALAZINE [Suspect]
     Active Substance: SULFASALAZINE
     Dates: start: 20091001, end: 20161001
  28. SULFASALAZINE [Suspect]
     Active Substance: SULFASALAZINE
  29. SULFASALAZINE [Suspect]
     Active Substance: SULFASALAZINE
     Route: 065
     Dates: start: 200909, end: 201609
  30. MESALAMINE [Suspect]
     Active Substance: MESALAMINE
     Indication: Colitis ulcerative
     Route: 065
     Dates: start: 201709, end: 201709
  31. MESALAMINE [Suspect]
     Active Substance: MESALAMINE
     Indication: Colitis ulcerative
     Route: 065
     Dates: start: 20160101, end: 201709
  32. MESALAMINE [Suspect]
     Active Substance: MESALAMINE
     Dosage: 6 DOSAGE FORM
     Route: 065
     Dates: start: 20160101
  33. MESALAMINE [Suspect]
     Active Substance: MESALAMINE
     Dosage: 3 DOSAGE FORM
     Route: 065
     Dates: start: 201610
  34. MESALAMINE [Suspect]
     Active Substance: MESALAMINE
     Route: 065
     Dates: start: 20160101, end: 20170901
  35. MESALAMINE [Suspect]
     Active Substance: MESALAMINE
     Route: 065
     Dates: start: 20160101, end: 20170901
  36. MESALAMINE [Suspect]
     Active Substance: MESALAMINE
     Route: 065
     Dates: start: 20160101, end: 20161001
  37. MESALAMINE [Suspect]
     Active Substance: MESALAMINE
     Route: 065
     Dates: start: 20161001
  38. MESALAMINE [Suspect]
     Active Substance: MESALAMINE
     Route: 065
     Dates: start: 20170101, end: 20170901
  39. MESALAMINE [Suspect]
     Active Substance: MESALAMINE
     Dosage: 6 DOSAGE FORM
     Route: 065
     Dates: start: 20170101
  40. MESALAMINE [Suspect]
     Active Substance: MESALAMINE
     Route: 065
     Dates: start: 201707, end: 201709
  41. MESALAMINE [Suspect]
     Active Substance: MESALAMINE
     Dosage: UNK
     Route: 065
     Dates: start: 202109, end: 202109
  42. MESALAMINE [Suspect]
     Active Substance: MESALAMINE
     Route: 065
     Dates: start: 20160101, end: 20161001
  43. MESALAMINE [Suspect]
     Active Substance: MESALAMINE
     Dosage: 6 DOSAGE FORM, QD (0.8 G, 3 TABLETS TWO TIMES A DAY (4.8 G DAILY))
     Route: 065
     Dates: start: 20160101
  44. VEDOLIZUMAB [Suspect]
     Active Substance: VEDOLIZUMAB
     Indication: Deep vein thrombosis
     Route: 065
     Dates: start: 2009
  45. VEDOLIZUMAB [Suspect]
     Active Substance: VEDOLIZUMAB
     Indication: Colitis ulcerative
     Dosage: 200 UNK
     Route: 042
     Dates: start: 2017, end: 2017
  46. VEDOLIZUMAB [Suspect]
     Active Substance: VEDOLIZUMAB
     Route: 048
  47. BUDESONIDE [Suspect]
     Active Substance: BUDESONIDE
     Indication: Colitis ulcerative
     Route: 048
     Dates: start: 200707
  48. BUDESONIDE [Suspect]
     Active Substance: BUDESONIDE
     Route: 048
     Dates: start: 201707
  49. BUDESONIDE [Suspect]
     Active Substance: BUDESONIDE
     Indication: Product used for unknown indication
     Dosage: 8 DOSAGE FORM
     Route: 048
     Dates: start: 200707
  50. BUDESONIDE [Suspect]
     Active Substance: BUDESONIDE
     Dates: start: 201707
  51. MESALAMINE [Suspect]
     Active Substance: MESALAMINE
     Indication: Colitis ulcerative
     Dosage: 245
     Route: 048
     Dates: start: 20160101
  52. MESALAMINE [Suspect]
     Active Substance: MESALAMINE
     Dosage: 245
     Route: 042
     Dates: start: 2017, end: 2017
  53. MESALAMINE [Suspect]
     Active Substance: MESALAMINE
     Dosage: 245
     Route: 048
     Dates: start: 20160101, end: 20161001
  54. MESALAMINE [Suspect]
     Active Substance: MESALAMINE
     Route: 048
     Dates: start: 20160101, end: 201610
  55. MESALAMINE [Suspect]
     Active Substance: MESALAMINE
     Route: 042
     Dates: start: 201601, end: 201610
  56. WARFARIN [Suspect]
     Active Substance: WARFARIN
     Indication: Colitis ulcerative
     Dosage: 1 DOSAGE FORM, QD
     Route: 048
     Dates: start: 201707
  57. WARFARIN [Suspect]
     Active Substance: WARFARIN
     Indication: Deep vein thrombosis
     Route: 065
     Dates: start: 2019
  58. WARFARIN [Suspect]
     Active Substance: WARFARIN
     Route: 065
     Dates: start: 2009
  59. WARFARIN [Suspect]
     Active Substance: WARFARIN
     Dosage: TAPERED DOSE IN 2009 (EXACT DOSE UNKNOWN)
     Route: 065
  60. WARFARIN [Suspect]
     Active Substance: WARFARIN
     Route: 065
     Dates: end: 2019
  61. WARFARIN SODIUM [Suspect]
     Active Substance: WARFARIN SODIUM
     Indication: Product used for unknown indication
     Route: 065
     Dates: end: 2019
  62. WARFARIN SODIUM [Suspect]
     Active Substance: WARFARIN SODIUM
     Indication: Deep vein thrombosis
     Route: 065
     Dates: start: 2009, end: 2009
  63. WARFARIN SODIUM [Suspect]
     Active Substance: WARFARIN SODIUM
     Indication: Crohn^s disease
     Route: 048
     Dates: start: 201707
  64. WARFARIN SODIUM [Suspect]
     Active Substance: WARFARIN SODIUM
     Indication: Colitis ulcerative
     Route: 065
     Dates: start: 2019, end: 2019
  65. WARFARIN SODIUM [Suspect]
     Active Substance: WARFARIN SODIUM
     Dosage: 8 DOSAGE FORM, Q8WK
     Route: 065
     Dates: start: 201707
  66. ADALIMUMAB [Suspect]
     Active Substance: ADALIMUMAB
     Indication: Product used for unknown indication
     Dosage: 120
     Route: 042
     Dates: start: 20171019
  67. ADALIMUMAB [Suspect]
     Active Substance: ADALIMUMAB
     Dosage: 8 DOSAGE FORM
     Route: 042
     Dates: start: 201707
  68. PREDNISONE [Suspect]
     Active Substance: PREDNISONE
     Indication: Colitis ulcerative
     Route: 065
     Dates: start: 2009, end: 2009
  69. PREDNISONE [Suspect]
     Active Substance: PREDNISONE
     Route: 042
     Dates: start: 2017, end: 2017
  70. PREDNISONE [Suspect]
     Active Substance: PREDNISONE
     Route: 065
  71. HYDROCORTISONE SODIUM SUCCINATE [Suspect]
     Active Substance: HYDROCORTISONE SODIUM SUCCINATE
     Indication: Colitis ulcerative
     Route: 065
  72. PARA-AMINOSALICYLIC ACID [Suspect]
     Active Substance: AMINOSALICYLIC ACID
     Indication: Colitis ulcerative
     Route: 065
  73. HYDROCORTISONE ACETATE [Suspect]
     Active Substance: HYDROCORTISONE ACETATE
     Indication: Colitis ulcerative
     Dosage: 1 DOSAGE FORMS
     Route: 065
     Dates: start: 201807
  74. HYDROCORTISONE ACETATE [Suspect]
     Active Substance: HYDROCORTISONE ACETATE
     Route: 065
     Dates: start: 20160101, end: 20161001
  75. HYDROCORTISONE ACETATE [Suspect]
     Active Substance: HYDROCORTISONE ACETATE
     Route: 065
  76. HYDROCORTISONE ACETATE [Suspect]
     Active Substance: HYDROCORTISONE ACETATE
     Route: 065
  77. HYDROCORTISONE ACETATE [Suspect]
     Active Substance: HYDROCORTISONE ACETATE
     Dosage: 1 DF, 1 TIME DAILY
     Route: 065
     Dates: start: 201707
  78. HYDROCORTISONE ACETATE [Suspect]
     Active Substance: HYDROCORTISONE ACETATE
     Dosage: 8 DOSAGE FORM, Q8WK
     Route: 065
     Dates: start: 201707
  79. HYDROCORTISONE ACETATE [Suspect]
     Active Substance: HYDROCORTISONE ACETATE
     Dosage: 8 DOSAGE FORM, Q8WK
     Route: 065
     Dates: start: 201807
  80. HYDROCORTISONE ACETATE [Suspect]
     Active Substance: HYDROCORTISONE ACETATE
     Dosage: UNK
     Route: 065
     Dates: start: 201601
  81. ASPIRIN [Suspect]
     Active Substance: ASPIRIN
     Indication: Ill-defined disorder
     Route: 065
  82. CANDESARTAN [Suspect]
     Active Substance: CANDESARTAN
     Indication: Product used for unknown indication
     Route: 048
  83. HUMIRA [Suspect]
     Active Substance: ADALIMUMAB
     Indication: Crohn^s disease
     Dosage: 8 DOSAGE FORM
     Route: 048
     Dates: start: 201707
  84. METHOTREXATE [Concomitant]
     Active Substance: METHOTREXATE
     Indication: Product used for unknown indication
     Dates: start: 201709, end: 201709
  85. METHOTREXATE [Concomitant]
     Active Substance: METHOTREXATE
     Indication: Colitis ulcerative
     Dates: start: 20090101, end: 20160101
  86. METHOTREXATE [Concomitant]
     Active Substance: METHOTREXATE
  87. ALBENDAZOLE [Concomitant]
     Active Substance: ALBENDAZOLE
     Indication: Deep vein thrombosis
     Dosage: 231
     Route: 042
  88. ALBENDAZOLE [Concomitant]
     Active Substance: ALBENDAZOLE
     Indication: Crohn^s disease
     Dosage: 8 DOSAGE FORM
     Route: 048
  89. ALBENDAZOLE [Concomitant]
     Active Substance: ALBENDAZOLE
     Indication: Colitis ulcerative
     Dosage: 8 DOSAGE FORM
     Route: 048
     Dates: start: 20090101, end: 20160101
  90. XELJANZ [Concomitant]
     Active Substance: TOFACITINIB CITRATE
     Indication: Colitis ulcerative
     Route: 048
  91. HUMIRA [Concomitant]
     Active Substance: ADALIMUMAB
     Indication: Crohn^s disease
     Dosage: 8 DOSAGE FORM
     Dates: start: 201707
  92. HUMIRA [Concomitant]
     Active Substance: ADALIMUMAB
     Indication: Deep vein thrombosis
     Dates: start: 201709, end: 201709
  93. HUMIRA [Concomitant]
     Active Substance: ADALIMUMAB
     Indication: Colitis ulcerative
  94. HUMIRA [Concomitant]
     Active Substance: ADALIMUMAB
     Route: 065
  95. HYDROCORTISONE [Concomitant]
     Active Substance: HYDROCORTISONE
     Indication: Colitis ulcerative
     Route: 048
  96. HYDROCORTISONE [Concomitant]
     Active Substance: HYDROCORTISONE
  97. HYDROCORTISONE [Concomitant]
     Active Substance: HYDROCORTISONE
  98. HYDROCORTISONE [Concomitant]
     Active Substance: HYDROCORTISONE
     Dosage: 8 DOSAGE FORM, Q8WK
     Dates: start: 200707
  99. MESALAMINE [Concomitant]
     Active Substance: MESALAMINE
     Indication: Colitis ulcerative
     Route: 065
  100. SULFASALAZINE [Concomitant]
     Active Substance: SULFASALAZINE
     Indication: Colitis ulcerative
     Dosage: UNK UNK, UNK
     Route: 065
     Dates: start: 20090101, end: 20160101
  101. SULFASALAZINE [Concomitant]
     Active Substance: SULFASALAZINE
     Dosage: UNK
     Route: 065
     Dates: start: 20091001, end: 20161001
  102. SULFASALAZINE [Concomitant]
     Active Substance: SULFASALAZINE
     Dosage: UNK
     Route: 065
     Dates: start: 2009, end: 2016
  103. SULFASALAZINE [Concomitant]
     Active Substance: SULFASALAZINE
     Dosage: UNK UNK, UNK
     Route: 065
     Dates: start: 20160101, end: 20160101
  104. SULFASALAZINE [Concomitant]
     Active Substance: SULFASALAZINE
     Dosage: UNK UNK, UNK
     Route: 065
     Dates: start: 201609, end: 201609

REACTIONS (30)
  - Impaired quality of life [Unknown]
  - Weight decreased [Unknown]
  - Rectal haemorrhage [Unknown]
  - Stress [Not Recovered/Not Resolved]
  - Impaired work ability [Unknown]
  - Loss of personal independence in daily activities [Unknown]
  - Loss of personal independence in daily activities [Unknown]
  - Steroid dependence [Unknown]
  - Bronchiectasis [Unknown]
  - Haematochezia [Unknown]
  - Deep vein thrombosis [Not Recovered/Not Resolved]
  - Adverse drug reaction [Not Recovered/Not Resolved]
  - Colitis ulcerative [Not Recovered/Not Resolved]
  - Colitis ulcerative [Not Recovered/Not Resolved]
  - Condition aggravated [Not Recovered/Not Resolved]
  - Frequent bowel movements [Unknown]
  - Rash [Not Recovered/Not Resolved]
  - Drug ineffective [Unknown]
  - Product use in unapproved indication [Unknown]
  - Off label use [Unknown]
  - Intentional product use issue [Not Recovered/Not Resolved]
  - Inappropriate schedule of product administration [Not Recovered/Not Resolved]
  - Medication error [Unknown]
  - Deep vein thrombosis [Unknown]
  - Weight decreased [Unknown]
  - Colitis ulcerative [Unknown]
  - Off label use [Unknown]
  - Loss of personal independence in daily activities [Unknown]
  - Bronchiectasis [Unknown]
  - Colitis ulcerative [Unknown]

NARRATIVE: CASE EVENT DATE: 20080101
